FAERS Safety Report 10990805 (Version 1)
Quarter: 2015Q2

REPORT INFORMATION
  Report Type: Report from Study
  Country: None (occurrence: JP)
  Receive Date: 20150406
  Receipt Date: 20150406
  Transmission Date: 20150821
  Serious: Yes (Death)
  Sender: FDA-Public Use
  Company Number: JP-CUBIST PHARMACEUTICALS, INC.-2015CBST000442

PATIENT

DRUGS (8)
  1. CUBICIN [Suspect]
     Active Substance: DAPTOMYCIN
     Indication: RETROPERITONEAL ABSCESS
     Dosage: 6 MG/KG, QD
     Route: 041
     Dates: start: 20131111, end: 20131128
  2. RECOMODULIN [Concomitant]
     Active Substance: THROMBOMODULIN ALFA
     Indication: PRODUCT USED FOR UNKNOWN INDICATION
     Dosage: 0.8 UNK, UNK
     Route: 051
     Dates: start: 20131115, end: 20131128
  3. INOVAN                             /00360702/ [Concomitant]
     Indication: PRODUCT USED FOR UNKNOWN INDICATION
     Dosage: 450 MG, TID
     Dates: start: 20131113, end: 20131128
  4. CUBICIN [Suspect]
     Active Substance: DAPTOMYCIN
     Indication: OFF LABEL USE
  5. ONOACT [Concomitant]
     Active Substance: LANDIOLOL HYDROCHLORIDE
     Dosage: 150 MG, QD
     Dates: start: 20131118, end: 20131128
  6. TIENAM [Concomitant]
     Active Substance: CILASTATIN SODIUM\IMIPENEM
     Indication: RETROPERITONEAL ABSCESS
     Dosage: 0.5 G, BID
     Dates: start: 20131021, end: 20131128
  7. DEXMEDETOMIDINE [Concomitant]
     Active Substance: DEXMEDETOMIDINE
     Indication: SEDATION
     Dosage: 400 ?G, UNK
     Route: 051
     Dates: start: 20131115, end: 20131128
  8. LIPLE [Concomitant]
     Indication: PRODUCT USED FOR UNKNOWN INDICATION
     Dosage: 5 ?G, UNK
     Route: 051
     Dates: start: 20131109, end: 20131120

REACTIONS (3)
  - Death [Fatal]
  - Off label use [None]
  - White blood cell count increased [None]

NARRATIVE: CASE EVENT DATE: 20131111
